FAERS Safety Report 22348073 (Version 1)
Quarter: 2023Q2

REPORT INFORMATION
  Report Type: Report from Study
  Country: US (occurrence: US)
  Receive Date: 20230522
  Receipt Date: 20230522
  Transmission Date: 20230722
  Serious: Yes (Other)
  Sender: FDA-Public Use
  Company Number: US-ABBVIE-4771194

PATIENT
  Age: 61 Year
  Sex: Male

DRUGS (1)
  1. RINVOQ [Suspect]
     Active Substance: UPADACITINIB
     Indication: Product used for unknown indication
     Route: 048
     Dates: start: 20221112

REACTIONS (4)
  - Back injury [Not Recovered/Not Resolved]
  - Joint swelling [Unknown]
  - Meniscus injury [Unknown]
  - Stress fracture [Unknown]

NARRATIVE: CASE EVENT DATE: 20230215
